FAERS Safety Report 25137316 (Version 1)
Quarter: 2025Q1

REPORT INFORMATION
  Report Type: Spontaneous
  Country: US (occurrence: US)
  Receive Date: 20250329
  Receipt Date: 20250329
  Transmission Date: 20250409
  Serious: Yes (Death, Other)
  Sender: ACCORD
  Company Number: US-Accord-475629

PATIENT
  Age: 68 Year
  Sex: Male

DRUGS (5)
  1. MYCOPHENOLATE MOFETIL [Suspect]
     Active Substance: MYCOPHENOLATE MOFETIL
     Indication: Immunosuppressant drug therapy
  2. TACROLIMUS [Suspect]
     Active Substance: TACROLIMUS
     Indication: Immunosuppressant drug therapy
  3. PREDNISONE [Suspect]
     Active Substance: PREDNISONE
     Indication: Immunosuppressant drug therapy
  4. CAPECITABINE [Concomitant]
     Active Substance: CAPECITABINE
     Indication: Actinic keratosis
     Dosage: 1 G/METER2
     Route: 048
  5. CAPECITABINE [Concomitant]
     Active Substance: CAPECITABINE
     Indication: Squamous cell carcinoma of skin
     Dosage: 1 G/METER2
     Route: 048

REACTIONS (1)
  - Metastases to lung [Fatal]
